FAERS Safety Report 6311252-5 (Version None)
Quarter: 2009Q3

REPORT INFORMATION
  Report Type: 
  Country: None (occurrence: None)
  Receive Date: 20090817
  Receipt Date: 20090619
  Transmission Date: 20100115
  Serious: No
  Sender: FDA-Public Use
  Company Number: US-BAYER-200921216NA

PATIENT
  Age: 55 Year
  Sex: Female
  Weight: 77 kg

DRUGS (4)
  1. CLIMARA [Suspect]
     Indication: MENOPAUSE
     Dosage: TOTAL DAILY DOSE: 0.05 MG
     Route: 062
  2. VITAMINS NOS [Concomitant]
  3. TYLENOL W/ CODEINE [Concomitant]
  4. BENADRYL [Concomitant]

REACTIONS (1)
  - POSTMENOPAUSAL HAEMORRHAGE [None]
